FAERS Safety Report 12323809 (Version 1)
Quarter: 2016Q2

REPORT INFORMATION
  Report Type: Spontaneous
  Country: US (occurrence: US)
  Receive Date: 20160502
  Receipt Date: 20160502
  Transmission Date: 20160815
  Serious: Yes (Hospitalization, Other)
  Sender: FDA-Public Use
  Company Number: US-PFIZER INC-2016234588

PATIENT
  Sex: Female
  Weight: 90.72 kg

DRUGS (3)
  1. CELEBREX [Suspect]
     Active Substance: CELECOXIB
     Indication: PAIN IN EXTREMITY
  2. CELEBREX [Suspect]
     Active Substance: CELECOXIB
     Indication: ARTHRITIS
     Dates: start: 2000
  3. CELEBREX [Suspect]
     Active Substance: CELECOXIB
     Indication: ARTHRALGIA

REACTIONS (9)
  - Head injury [Unknown]
  - Haemorrhage [Unknown]
  - Pain [Unknown]
  - Urinary tract disorder [Unknown]
  - Fall [Unknown]
  - Diverticulum [Unknown]
  - Breast cancer [Recovering/Resolving]
  - Incontinence [Unknown]
  - Visual acuity reduced [Unknown]
